FAERS Safety Report 26169120 (Version 1)
Quarter: 2025Q4

REPORT INFORMATION
  Report Type: Spontaneous
  Country: EU (occurrence: EU)
  Receive Date: 20251217
  Receipt Date: 20251217
  Transmission Date: 20260118
  Serious: Yes (Death)
  Sender: ROCHE
  Company Number: EU-BoehringerIngelheim-2025-BI-114522

PATIENT
  Sex: Male

DRUGS (1)
  1. METALYSE [Suspect]
     Active Substance: TENECTEPLASE
     Indication: Ischaemic stroke
     Dosage: FORM STRENGTH: 25 MILLIGRAM
     Route: 042

REACTIONS (1)
  - Death [Fatal]
